FAERS Safety Report 4876078-8 (Version None)
Quarter: 2006Q1

REPORT INFORMATION
  Report Type: 
  Country: None (occurrence: None)
  Receive Date: 20060106
  Receipt Date: 20060106
  Transmission Date: 20060701
  Serious: Yes (Death)
  Sender: FDA-Public Use
  Company Number: None

PATIENT
  Sex: Female
  Weight: 76.3 kg

DRUGS (3)
  1. GEMCITABINE [Suspect]
     Indication: CERVIX CARCINOMA
     Dosage: SEE IMAGE
     Route: 042
     Dates: start: 20051128, end: 20051205
  2. CISPLATIN [Suspect]
     Dosage: SEE IMAGE
     Route: 042
  3. HYDROCHLOROTHIAZIDE [Concomitant]

REACTIONS (2)
  - NECROSIS [None]
  - PERFORMANCE STATUS DECREASED [None]
